FAERS Safety Report 23273009 (Version 1)
Quarter: 2023Q4

REPORT INFORMATION
  Report Type: Spontaneous
  Country: US (occurrence: US)
  Receive Date: 20231207
  Receipt Date: 20231207
  Transmission Date: 20240109
  Serious: No
  Sender: FDA-Public Use
  Company Number: US-MYLANLABS-2023M1129385

PATIENT
  Sex: Female
  Weight: 54.43 kg

DRUGS (1)
  1. LISDEXAMFETAMINE DIMESYLATE [Suspect]
     Active Substance: LISDEXAMFETAMINE DIMESYLATE
     Indication: Attention deficit hyperactivity disorder
     Dosage: 1 DOSAGE FORM (EVERY MORNING)
     Route: 065
     Dates: start: 20231128

REACTIONS (3)
  - Disturbance in attention [Unknown]
  - Somnolence [Unknown]
  - Drug ineffective [Unknown]
